FAERS Safety Report 14601396 (Version 1)
Quarter: 2018Q1

REPORT INFORMATION
  Report Type: Spontaneous
  Country: US (occurrence: US)
  Receive Date: 20180305
  Receipt Date: 20180305
  Transmission Date: 20180509
  Serious: No
  Sender: FDA-Public Use
  Company Number: US-SENTYNL THERAPEUTICS, INC.  -2043007

PATIENT
  Age: 52 Year
  Sex: Female
  Weight: 70 kg

DRUGS (14)
  1. MECLIZINE HCL 25 MG [Concomitant]
     Active Substance: MECLIZINE HYDROCHLORIDE
  2. SALINE NASAL [Concomitant]
     Active Substance: SODIUM CHLORIDE
  3. TIZANIDINE. [Concomitant]
     Active Substance: TIZANIDINE
  4. DEXAMETHASONE. [Concomitant]
     Active Substance: DEXAMETHASONE
  5. ABSTRAL [Suspect]
     Active Substance: FENTANYL CITRATE
     Indication: CANCER PAIN
     Route: 060
     Dates: start: 201612, end: 20170430
  6. ENOXAPARIN SODIUM. [Concomitant]
     Active Substance: ENOXAPARIN SODIUM
  7. DIAZEPAM. [Concomitant]
     Active Substance: DIAZEPAM
  8. ACYCLOVIR. [Concomitant]
     Active Substance: ACYCLOVIR
  9. CLOTRIMAZOLE. [Concomitant]
     Active Substance: CLOTRIMAZOLE
  10. GABAPENTIN. [Concomitant]
     Active Substance: GABAPENTIN
  11. HYDROXYCHLOROQUINE SULFATE. [Concomitant]
     Active Substance: HYDROXYCHLOROQUINE SULFATE
  12. POMALYST [Concomitant]
     Active Substance: POMALIDOMIDE
  13. DAPSONE. [Concomitant]
     Active Substance: DAPSONE
  14. OXYCODONE HYDROCHLORIDE. [Concomitant]
     Active Substance: OXYCODONE HYDROCHLORIDE

REACTIONS (2)
  - Rheumatoid arthritis [Not Recovered/Not Resolved]
  - Pain [Not Recovered/Not Resolved]
